FAERS Safety Report 9515823 (Version 2)
Quarter: 2013Q4

REPORT INFORMATION
  Report Type: Spontaneous
  Country: FR (occurrence: FR)
  Receive Date: 20130911
  Receipt Date: 20131028
  Transmission Date: 20140711
  Serious: Yes (Death)
  Sender: FDA-Public Use
  Company Number: FR-EISAI INC-E7389-04185-SPO-FR

PATIENT
  Age: 50 Year
  Sex: Female
  Weight: 65 kg

DRUGS (1)
  1. HALAVEN [Suspect]
     Indication: BREAST CANCER METASTATIC
     Dosage: 1.23 MG/M2
     Route: 041
     Dates: start: 20130604, end: 20130810

REACTIONS (2)
  - Sudden death [Fatal]
  - Abdominal pain [Fatal]
